APPROVED DRUG PRODUCT: TERBUTALINE SULFATE
Active Ingredient: TERBUTALINE SULFATE
Strength: 2.5MG
Dosage Form/Route: TABLET;ORAL
Application: A211832 | Product #001 | TE Code: AB
Applicant: TWI PHARMACEUTICALS INC
Approved: Jun 19, 2020 | RLD: No | RS: No | Type: RX